FAERS Safety Report 13088725 (Version 1)
Quarter: 2016Q4

REPORT INFORMATION
  Report Type: Spontaneous
  Country: US (occurrence: US)
  Receive Date: 20161230
  Receipt Date: 20161230
  Transmission Date: 20170207
  Serious: No
  Sender: FDA-Public Use
  Company Number: None

PATIENT
  Age: 41 Year
  Sex: Female
  Weight: 63 kg

DRUGS (8)
  1. DIGESTIVE ADVANTAGE PROBIOTIC [Concomitant]
  2. VITAMIN B COMPLEX [Concomitant]
     Active Substance: CYANOCOBALAMIN\DEXPANTHENOL\NIACINAMIDE\PYRIDOXINE HYDROCHLORIDE\RIBOFLAVIN 5^-PHOSPHATE SODIUM\THIAMINE HYDROCHLORIDE\VITAMIN B COMPLEX
  3. ESCITALOPRAM [Suspect]
     Active Substance: ESCITALOPRAM OXALATE
     Indication: ANXIETY
     Dates: start: 20070801, end: 20161219
  4. FISH OIL [Concomitant]
     Active Substance: FISH OIL
  5. METAMUCIL [Concomitant]
     Active Substance: PLANTAGO SEED
  6. ESCITALOPRAM [Suspect]
     Active Substance: ESCITALOPRAM OXALATE
     Indication: POSTPARTUM DISORDER
     Dates: start: 20070801, end: 20161219
  7. SYNTHROID [Concomitant]
     Active Substance: LEVOTHYROXINE SODIUM
  8. VITD [Concomitant]

REACTIONS (10)
  - Nausea [None]
  - Withdrawal syndrome [None]
  - Abnormal sensation in eye [None]
  - Balance disorder [None]
  - Feeling abnormal [None]
  - Muscle spasticity [None]
  - Paraesthesia [None]
  - Dizziness [None]
  - Tinnitus [None]
  - Headache [None]

NARRATIVE: CASE EVENT DATE: 20161228
